FAERS Safety Report 11773306 (Version 1)
Quarter: 2015Q4

REPORT INFORMATION
  Report Type: Spontaneous
  Country: CZ (occurrence: CZ)
  Receive Date: 20151124
  Receipt Date: 20151124
  Transmission Date: 20160304
  Serious: Yes (Hospitalization, Other)
  Sender: FDA-Public Use
  Company Number: CZ-BAYER-2015-461638

PATIENT
  Age: 60 Year
  Sex: Male

DRUGS (3)
  1. NEXAVAR [Suspect]
     Active Substance: SORAFENIB
     Indication: RENAL CANCER METASTATIC
     Dosage: UNK
     Route: 048
     Dates: start: 200704, end: 200801
  2. NEXAVAR [Suspect]
     Active Substance: SORAFENIB
     Indication: RENAL CANCER METASTATIC
     Dosage: UNK
     Route: 048
     Dates: end: 201006
  3. NEXAVAR [Suspect]
     Active Substance: SORAFENIB
     Indication: RENAL CANCER METASTATIC
     Dosage: UNK
     Route: 048
     Dates: end: 201202

REACTIONS (3)
  - Skin toxicity [Recovered/Resolved]
  - Seizure [None]
  - Hypomagnesaemia [None]
